FAERS Safety Report 8925852 (Version 1)
Quarter: 2012Q4

REPORT INFORMATION
  Report Type: 
  Country: BR (occurrence: BR)
  Receive Date: 20121126
  Receipt Date: 20121126
  Transmission Date: 20130627
  Serious: Yes (Death, Hospitalization, Other)
  Sender: FDA-Public Use
  Company Number: PHHY2012BR107414

PATIENT
  Sex: Male
  Weight: 86 kg

DRUGS (7)
  1. DIOVAN [Suspect]
     Indication: HYPERTENSION
     Dosage: 1 DF, at night
     Route: 048
  2. RITMONORM [Concomitant]
     Indication: HEART RATE ABNORMAL
     Dosage: 2 DF, at night
     Route: 048
  3. RITMONORM [Concomitant]
     Dosage: 1 DF, at night
     Route: 048
  4. CARDIZEM [Concomitant]
     Indication: ARTERIAL DISORDER
     Dosage: 1 DF, BID (1 in morning and 1at night)
     Route: 048
  5. CARDIZEM [Concomitant]
     Dosage: 1 DF, UNK
     Route: 048
  6. AAS [Concomitant]
     Indication: ANTICOAGULANT THERAPY
     Dosage: 1 DF, daily
     Route: 048
  7. SYNTHROID [Concomitant]

REACTIONS (5)
  - Ventricular arrhythmia [Fatal]
  - Infarction [Fatal]
  - Chest pain [Not Recovered/Not Resolved]
  - Renal impairment [Not Recovered/Not Resolved]
  - Weight decreased [Not Recovered/Not Resolved]
